FAERS Safety Report 26060845 (Version 1)
Quarter: 2025Q4

REPORT INFORMATION
  Report Type: Spontaneous
  Country: EU (occurrence: EU)
  Receive Date: 20251118
  Receipt Date: 20251118
  Transmission Date: 20260117
  Serious: Yes (Hospitalization)
  Sender: FRESENIUS KABI
  Company Number: None

PATIENT
  Age: 76 Year
  Sex: Female
  Weight: 58 kg

DRUGS (10)
  1. PACLITAXEL [Suspect]
     Active Substance: PACLITAXEL
     Indication: Ovarian cancer metastatic
     Dosage: 7 CURES
     Route: 042
     Dates: start: 202410, end: 20250403
  2. PACLITAXEL [Suspect]
     Active Substance: PACLITAXEL
     Dosage: 6 CURES
     Route: 042
     Dates: start: 201303, end: 201309
  3. GEMCITABINE [Suspect]
     Active Substance: GEMCITABINE
     Indication: Ovarian cancer metastatic
     Dosage: 2 CURES
     Route: 048
     Dates: start: 202312, end: 202401
  4. CARBOPLATIN [Suspect]
     Active Substance: CARBOPLATIN
     Indication: Ovarian cancer metastatic
     Dosage: 2 CURES
     Route: 042
     Dates: start: 202312, end: 202401
  5. CARBOPLATIN [Suspect]
     Active Substance: CARBOPLATIN
     Dosage: 6 CURES
     Route: 042
     Dates: start: 201811, end: 201904
  6. CARBOPLATIN [Suspect]
     Active Substance: CARBOPLATIN
     Dosage: 6 CURES
     Route: 042
     Dates: start: 201303, end: 201309
  7. DOXORUBICIN HYDROCHLORIDE [Suspect]
     Active Substance: DOXORUBICIN HYDROCHLORIDE
     Indication: Ovarian cancer metastatic
     Dosage: 6 CURES
     Route: 042
     Dates: start: 201811, end: 201904
  8. ZEJULA [Suspect]
     Active Substance: NIRAPARIB
     Indication: Ovarian cancer metastatic
     Route: 048
     Dates: start: 201909, end: 202103
  9. ZEJULA [Suspect]
     Active Substance: NIRAPARIB
     Route: 048
     Dates: start: 202103, end: 202207
  10. RUBRACA [Suspect]
     Active Substance: RUCAPARIB CAMSYLATE
     Indication: Ovarian cancer metastatic
     Dates: start: 202207, end: 202312

REACTIONS (1)
  - Myelodysplastic syndrome [Not Recovered/Not Resolved]

NARRATIVE: CASE EVENT DATE: 20250613
